FAERS Safety Report 9713936 (Version 2)
Quarter: 2015Q3

REPORT INFORMATION
  Report Type: Spontaneous
  Country: US (occurrence: US)
  Receive Date: 20131126
  Receipt Date: 20150803
  Transmission Date: 20151125
  Serious: No
  Sender: FDA-Public Use
  Company Number: US-GILEAD-2008-0018221

PATIENT
  Age: 54 Year
  Sex: Female
  Weight: 64.86 kg

DRUGS (13)
  1. SPIRONOLACTONE. [Concomitant]
     Active Substance: SPIRONOLACTONE
     Dosage: AS DIRECTED
     Route: 048
  2. SLOW MAG [Concomitant]
     Active Substance: MAGNESIUM CHLORIDE
     Dosage: AS DIRECTED
     Route: 048
  3. WARFARIN SODIUM. [Concomitant]
     Active Substance: WARFARIN SODIUM
     Dosage: AS DIRECTED
     Route: 048
  4. LASIX [Concomitant]
     Active Substance: FUROSEMIDE
     Dosage: AS DIRECTED
     Route: 048
  5. SODIUM CHLORIDE. [Concomitant]
     Active Substance: SODIUM CHLORIDE
     Dosage: AS DIRECTED
  6. DIGOXIN. [Concomitant]
     Active Substance: DIGOXIN
     Dosage: AS DIRECTED
     Route: 048
  7. KLOR-CON [Concomitant]
     Active Substance: POTASSIUM CHLORIDE
     Dosage: AS DIRECTED
     Route: 048
  8. DIPHENOXYLATE/ATROP SULF [Concomitant]
     Dosage: AS DIRECTED
  9. LETAIRIS [Suspect]
     Active Substance: AMBRISENTAN
     Indication: PULMONARY ARTERIAL HYPERTENSION
     Route: 048
     Dates: start: 20080911, end: 20080919
  10. FLOLAN [Concomitant]
     Active Substance: EPOPROSTENOL SODIUM
     Dosage: AS DIRECTED
  11. METOLAZONE. [Concomitant]
     Active Substance: METOLAZONE
     Dosage: AS DIRECTED
     Route: 048
  12. REVATIO [Concomitant]
     Active Substance: SILDENAFIL CITRATE
     Dosage: AS DIRECTED
     Route: 048
  13. OXYGEN. [Concomitant]
     Active Substance: OXYGEN
     Dosage: AS DIRECTED

REACTIONS (1)
  - Malaise [None]
